FAERS Safety Report 7001034-3 (Version None)
Quarter: 2010Q3

REPORT INFORMATION
  Report Type: 
  Country: None (occurrence: None)
  Receive Date: 20100920
  Receipt Date: 20080505
  Transmission Date: 20110219
  Serious: Yes (Other)
  Sender: FDA-Public Use
  Company Number: US-ASTRAZENECA-2007UW07540

PATIENT
  Age: 67 Year
  Sex: Female
  Weight: 74.8 kg

DRUGS (23)
  1. SEROQUEL [Suspect]
     Indication: NERVOUSNESS
     Route: 048
     Dates: start: 20020101, end: 20050101
  2. SEROQUEL [Suspect]
     Indication: ANXIETY
     Route: 048
     Dates: start: 20020101, end: 20050101
  3. SEROQUEL [Suspect]
     Indication: SCHIZOPHRENIA
     Route: 048
     Dates: start: 20020101, end: 20050101
  4. SEROQUEL [Suspect]
     Route: 048
     Dates: start: 20040226, end: 20060328
  5. SEROQUEL [Suspect]
     Route: 048
     Dates: start: 20040226, end: 20060328
  6. SEROQUEL [Suspect]
     Route: 048
     Dates: start: 20040226, end: 20060328
  7. ZYPREXA [Suspect]
     Indication: ABNORMAL BEHAVIOUR
     Dates: start: 20030908, end: 20040226
  8. ZOLOFT [Concomitant]
     Indication: IRRITABILITY
     Dates: start: 20030908
  9. BENZTROPIN [Concomitant]
  10. HYDROCHLOROTHIAZIDE [Concomitant]
  11. DYPHYLLINE [Concomitant]
  12. GUANFACINE HYDROCHLORIDE [Concomitant]
  13. ALTACE [Concomitant]
  14. ZITHROMAX [Concomitant]
  15. QUINARETIC [Concomitant]
  16. NORVASC [Concomitant]
  17. FLUPHENAZINE [Concomitant]
  18. LOTREL [Concomitant]
  19. TRIAMTERENE/HCT [Concomitant]
  20. PROLIXIN DECANOATE [Concomitant]
     Dosage: 1/2 CC, 12.5 MG Q 3 WEEKS
     Dates: start: 19991207
  21. ARICEPT [Concomitant]
     Indication: COGNITIVE DISORDER
     Dates: start: 20060328
  22. ABILIFY [Concomitant]
     Dates: end: 20030908
  23. COGENTIN [Concomitant]
     Indication: EXTRAPYRAMIDAL DISORDER
     Dosage: 0.5-10 MG
     Dates: start: 19991207

REACTIONS (7)
  - BLOOD CHOLESTEROL INCREASED [None]
  - BLOOD GLUCOSE INCREASED [None]
  - DEHYDRATION [None]
  - DIABETES MELLITUS [None]
  - PARKINSON'S DISEASE [None]
  - TARDIVE DYSKINESIA [None]
  - TREMOR [None]
